FAERS Safety Report 12789753 (Version 1)
Quarter: 2016Q3

REPORT INFORMATION
  Report Type: Spontaneous
  Country: GR (occurrence: GR)
  Receive Date: 20160928
  Receipt Date: 20160928
  Transmission Date: 20161109
  Serious: Yes (Other)
  Sender: FDA-Public Use
  Company Number: GR-BAYER-2016-144174

PATIENT
  Age: 24 Year
  Sex: Female

DRUGS (2)
  1. YASMINELLE [Suspect]
     Active Substance: DROSPIRENONE
     Indication: OVARIAN CYST
     Dosage: UNK
     Route: 048
     Dates: start: 20160717, end: 201608
  2. KLARICID [Concomitant]
     Active Substance: CLARITHROMYCIN
     Indication: INFLAMMATION
     Dosage: UNK
     Dates: start: 201607

REACTIONS (5)
  - Eye haemorrhage [Recovered/Resolved]
  - Ocular hyperaemia [Recovered/Resolved]
  - Asthenopia [Recovered/Resolved]
  - Off label use [None]
  - Foreign body sensation in eyes [Recovered/Resolved]

NARRATIVE: CASE EVENT DATE: 20160717
